FAERS Safety Report 4314650-4 (Version None)
Quarter: 2004Q1

REPORT INFORMATION
  Report Type: 
  Country: None (occurrence: None)
  Receive Date: 20040308
  Receipt Date: 20040226
  Transmission Date: 20041129
  Serious: Yes (Death)
  Sender: FDA-Public Use
  Company Number: 2004EU000402

PATIENT
  Age: 24 Year
  Sex: Female
  Weight: 55 kg

DRUGS (4)
  1. PROGRAF [Suspect]
     Indication: LIVER TRANSPLANT
     Dates: start: 20010601, end: 20010625
  2. ANTILYMPHOCYTE GLOBULN (ANTILYMPHOCYTE IMMUNOGLOBULIN (HORSE) [Concomitant]
  3. CORTICOSTEROIDS [Concomitant]
  4. IMMUNOGLOBULIN ANTIHEPATITIS B (IMMUNOGLOBULIN ANTIHEPATITIS B) [Concomitant]

REACTIONS (4)
  - ASPERGILLOSIS [None]
  - HAEMODIALYSIS [None]
  - MULTI-ORGAN FAILURE [None]
  - POSTOPERATIVE INFECTION [None]
